FAERS Safety Report 4461297-5 (Version None)
Quarter: 2004Q3

REPORT INFORMATION
  Report Type: 
  Country: None (occurrence: None)
  Receive Date: 20040928
  Receipt Date: 20040812
  Transmission Date: 20050211
  Serious: Yes (Hospitalization)
  Sender: FDA-Public Use
  Company Number: JP-GLAXOSMITHKLINE-B0342697A

PATIENT
  Age: 24 Year
  Sex: Male

DRUGS (8)
  1. ZOVIRAX [Suspect]
     Indication: HERPES SIMPLEX
     Route: 048
     Dates: start: 20020901
  2. VALTREX [Suspect]
     Indication: HERPES VIRUS INFECTION
     Route: 048
  3. ANTIPYRETICS [Concomitant]
     Indication: NASOPHARYNGITIS
     Route: 048
  4. ANALGESICS [Concomitant]
     Indication: NASOPHARYNGITIS
     Route: 048
  5. COLD MEDICATION [Concomitant]
     Indication: NASOPHARYNGITIS
     Dosage: 3TAB THREE TIMES PER DAY
     Route: 048
  6. IBUPROFEN [Suspect]
     Route: 065
     Dates: start: 20040701
  7. PREDONINE [Concomitant]
     Route: 065
  8. ANTI-INFLAMMATORY [Concomitant]
     Route: 065

REACTIONS (11)
  - ERYTHEMA [None]
  - LYMPHOCYTE STIMULATION TEST NEGATIVE [None]
  - NASOPHARYNGITIS [None]
  - ORAL PAIN [None]
  - PRURITUS [None]
  - PUBIC PAIN [None]
  - RASH [None]
  - SCROTAL ULCER [None]
  - STEVENS-JOHNSON SYNDROME [None]
  - TONGUE DISORDER [None]
  - TOXIC EPIDERMAL NECROLYSIS [None]
